FAERS Safety Report 16178224 (Version 2)
Quarter: 2020Q2

REPORT INFORMATION
  Report Type: Spontaneous
  Country: CA (occurrence: CA)
  Receive Date: 20190410
  Receipt Date: 20200403
  Transmission Date: 20200713
  Serious: Yes (Hospitalization)
  Sender: FDA-Public Use
  Company Number: CA-ROCHE-2300865

PATIENT
  Age: 65 Year
  Sex: Female

DRUGS (7)
  1. MORPHINE SULFATE. [Suspect]
     Active Substance: MORPHINE SULFATE
     Indication: ABDOMINAL PAIN
  2. XOLAIR [Suspect]
     Active Substance: OMALIZUMAB
     Route: 058
  3. ADVAIR HFA [Concomitant]
     Active Substance: FLUTICASONE PROPIONATE\SALMETEROL XINAFOATE
     Indication: PRODUCT USED FOR UNKNOWN INDICATION
     Route: 065
  4. XOLAIR [Suspect]
     Active Substance: OMALIZUMAB
     Indication: ASTHMA
     Route: 058
  5. MORPHINE SULFATE. [Suspect]
     Active Substance: MORPHINE SULFATE
     Indication: PRODUCT USED FOR UNKNOWN INDICATION
     Route: 048
  6. HYDROCORTISONE. [Suspect]
     Active Substance: HYDROCORTISONE
     Indication: ADRENAL INSUFFICIENCY
     Route: 065
  7. VENTOLIN [Concomitant]
     Active Substance: ALBUTEROL SULFATE
     Indication: PRODUCT USED FOR UNKNOWN INDICATION
     Dosage: UNK
     Route: 065

REACTIONS (26)
  - Bronchitis [Unknown]
  - Cough [Unknown]
  - Pneumonia [Unknown]
  - Pyrexia [Unknown]
  - Abdominal pain [Unknown]
  - Cellulitis [Unknown]
  - Inappropriate schedule of product administration [Unknown]
  - Seasonal allergy [Unknown]
  - Weight increased [Unknown]
  - Oxygen saturation decreased [Unknown]
  - Pain [Unknown]
  - Sinusitis [Unknown]
  - Dyspnoea [Unknown]
  - Lung disorder [Unknown]
  - Ovarian cyst [Unknown]
  - Adrenal insufficiency [Unknown]
  - Basophil count increased [Unknown]
  - Epiglottitis [Unknown]
  - White blood cell count decreased [Unknown]
  - Thyroid disorder [Unknown]
  - Tremor [Unknown]
  - Parkinson^s disease [Unknown]
  - Productive cough [Unknown]
  - Sepsis [Unknown]
  - Sinus pain [Unknown]
  - Weight decreased [Unknown]
